FAERS Safety Report 5448592-8 (Version None)
Quarter: 2007Q3

REPORT INFORMATION
  Report Type: 
  Country: None (occurrence: None)
  Receive Date: 20070911
  Receipt Date: 20070831
  Transmission Date: 20080115
  Serious: Yes (Hospitalization)
  Sender: FDA-Public Use
  Company Number: CO-JNJFOC-20070900502

PATIENT
  Age: 28 Year
  Sex: Female
  Weight: 60 kg

DRUGS (4)
  1. REMICADE [Suspect]
     Indication: TAKAYASU'S ARTERITIS
     Route: 042
  2. OMEPRAZOLE [Concomitant]
  3. ENALAPRIL [Concomitant]
  4. ASPIRIN [Concomitant]

REACTIONS (2)
  - LYMPH NODE TUBERCULOSIS [None]
  - PULMONARY TUBERCULOSIS [None]
